FAERS Safety Report 8961577 (Version 3)
Quarter: 2013Q1

REPORT INFORMATION
  Report Type: Spontaneous
  Country: US (occurrence: US)
  Receive Date: 20121213
  Receipt Date: 20130314
  Transmission Date: 20140127
  Serious: Yes (Hospitalization)
  Sender: FDA-Public Use
  Company Number: US-BAYER-2012-129298

PATIENT
  Age: 37 Year
  Sex: Female
  Weight: 101.59 kg

DRUGS (1)
  1. YAZ [Suspect]
     Dosage: UNK
     Dates: start: 20071109, end: 200811

REACTIONS (8)
  - Cerebrovascular accident [Recovering/Resolving]
  - Pain [Recovering/Resolving]
  - Injury [Recovering/Resolving]
  - General physical health deterioration [Recovering/Resolving]
  - Emotional distress [None]
  - Anhedonia [None]
  - Anxiety [None]
  - Pain [None]
